FAERS Safety Report 23621355 (Version 2)
Quarter: 2024Q2

REPORT INFORMATION
  Report Type: Report from Study
  Country: CN (occurrence: CN)
  Receive Date: 20240312
  Receipt Date: 20240418
  Transmission Date: 20240716
  Serious: Yes (Hospitalization, Other)
  Sender: FDA-Public Use
  Company Number: CN-Accord-410652

PATIENT
  Age: 54 Year
  Sex: Female
  Weight: 70 kg

DRUGS (7)
  1. FLUOROURACIL [Suspect]
     Active Substance: FLUOROURACIL
     Indication: HER2 positive colorectal cancer
     Dosage: 400MG/M2 IV BOLUS THEN 2400MG/M2 EVERY 2 WEEK ON DAYS 1,15 AND 29 OF EACH 6-WEEK CYCLE
     Route: 042
     Dates: start: 20231107
  2. OXALIPLATIN [Suspect]
     Active Substance: OXALIPLATIN
     Indication: HER2 positive colorectal cancer
     Dosage: 85 MILLIGRAM/SQ. METER Q2WEEKS ON DAYS 1,15 AND 9 OF EACH 6-;
     Route: 042
     Dates: start: 20231107
  3. LEUCOVORIN [Suspect]
     Active Substance: LEUCOVORIN\LEUCOVORIN CALCIUM
     Indication: HER2 positive colorectal cancer
     Dosage: 400 MG/M2, Q2WEEKS ON DAYS 1,15 AND 29 OF EACH 6-WEEK CYCLE;
     Route: 042
     Dates: start: 20231107
  4. TUCATINIB [Concomitant]
     Active Substance: TUCATINIB
     Indication: HER2 positive colorectal cancer
     Dosage: BID
     Route: 048
     Dates: start: 20231107
  5. TRASTUZUMAB [Concomitant]
     Active Substance: TRASTUZUMAB
     Indication: HER2 positive colorectal cancer
     Dosage: 8 MG/KG SINGLE LOADING DOSE ON C1D1
     Route: 042
     Dates: start: 20231107, end: 20231107
  6. LOPERAMIDE [Concomitant]
     Active Substance: LOPERAMIDE
     Indication: Prophylaxis against diarrhoea
     Dosage: 4 MG TID (DAYS 1 TO 14) OLLOWED BY 4MG BID (DAYS 15 THROUGH 42)
     Route: 048
     Dates: start: 20231107
  7. TRASTUZUMAB [Concomitant]
     Active Substance: TRASTUZUMAB
     Indication: HER2 positive colorectal cancer
     Dosage: 6 MG/KG ON C1D22, THEN DAY 1 AND 22 OF EACH SUBSEQUENT 6-WEEK (42-DAY) CYCLE
     Route: 042

REACTIONS (1)
  - Bacterial sepsis [Recovered/Resolved]

NARRATIVE: CASE EVENT DATE: 20240216
